FAERS Safety Report 5523275-4 (Version None)
Quarter: 2007Q4

REPORT INFORMATION
  Report Type: 
  Country: None (occurrence: None)
  Receive Date: 20071121
  Receipt Date: 20071115
  Transmission Date: 20080405
  Serious: Yes (Death, Other)
  Sender: FDA-Public Use
  Company Number: US-GENENTECH-243384

PATIENT
  Age: 66 Year
  Sex: Male

DRUGS (10)
  1. RITUXIMAB [Suspect]
     Indication: CHRONIC LYMPHOCYTIC LEUKAEMIA
     Dosage: 50 MG/M2, UNK
     Route: 042
     Dates: start: 20060501
  2. RITUXIMAB [Suspect]
     Dosage: 325 MG/M2, UNK
     Route: 042
  3. RITUXIMAB [Suspect]
     Dosage: 375 MG/M2, UNK
     Route: 042
  4. FLUDARA [Suspect]
     Indication: CHRONIC LYMPHOCYTIC LEUKAEMIA
     Dosage: 25 MG/M2, QD
     Route: 042
     Dates: start: 20060501, end: 20060101
  5. CAMPATH [Suspect]
     Indication: CHRONIC LYMPHOCYTIC LEUKAEMIA
     Dosage: UNK, UNK
     Dates: start: 20070122
  6. BENADRYL [Concomitant]
     Indication: PREMEDICATION
     Dosage: 50 MG, UNK
  7. ACETAMINOPHEN [Concomitant]
     Indication: PREMEDICATION
     Dosage: 650 MG, UNK
  8. COTRIM [Concomitant]
     Indication: DRUG USE FOR UNKNOWN INDICATION
  9. BACTRIM [Concomitant]
     Indication: INFECTION PROPHYLAXIS
  10. ACYCLOVIR [Concomitant]
     Indication: INFECTION PROPHYLAXIS

REACTIONS (1)
  - EPSTEIN-BARR VIRUS INFECTION [None]
